FAERS Safety Report 20108334 (Version 1)
Quarter: 2021Q4

REPORT INFORMATION
  Report Type: Spontaneous
  Country: AU (occurrence: AU)
  Receive Date: 20211124
  Receipt Date: 20211124
  Transmission Date: 20220303
  Serious: Yes (Death)
  Sender: FDA-Public Use
  Company Number: AU-GUERBET-AU-20210201

PATIENT
  Age: 75 Year
  Sex: Male
  Weight: 94 kg

DRUGS (3)
  1. OPTIRAY 350 [Suspect]
     Active Substance: IOVERSOL
     Indication: Computerised tomogram thorax
     Route: 042
     Dates: start: 20211115, end: 20211115
  2. OPTIRAY 350 [Suspect]
     Active Substance: IOVERSOL
     Indication: Computerised tomogram abdomen
     Route: 042
     Dates: start: 20211115, end: 20211115
  3. SALINE [Concomitant]
     Active Substance: SODIUM CHLORIDE
     Indication: Investigation
     Route: 042

REACTIONS (4)
  - Cardiac arrest [Fatal]
  - Blood pressure immeasurable [Fatal]
  - Malaise [Fatal]
  - Nausea [Fatal]

NARRATIVE: CASE EVENT DATE: 20211115
